FAERS Safety Report 5105338-0 (Version None)
Quarter: 2006Q3

REPORT INFORMATION
  Report Type: 
  Country: None (occurrence: None)
  Receive Date: 20060915
  Receipt Date: 20060905
  Transmission Date: 20061208
  Serious: Yes (Other)
  Sender: FDA-Public Use
  Company Number: US-BAYER-200613755BCC

PATIENT
  Age: 59 Year
  Sex: Female
  Weight: 147 kg

DRUGS (1)
  1. ALEVE [Suspect]
     Indication: DYSMENORRHOEA
     Dosage: TOTAL DAILY DOSE: 880 MG  UNIT DOSE: 220 MG
     Route: 048
     Dates: start: 20060904

REACTIONS (2)
  - DYSMENORRHOEA [None]
  - POST PROCEDURAL HAEMORRHAGE [None]
